FAERS Safety Report 4445745-2 (Version None)
Quarter: 2004Q3

REPORT INFORMATION
  Report Type: 
  Country: None (occurrence: None)
  Receive Date: 20040910
  Receipt Date: 20040831
  Transmission Date: 20050211
  Serious: Yes (Hospitalization)
  Sender: FDA-Public Use
  Company Number: US-JNJFOC-20040900600

PATIENT
  Age: 49 Year
  Sex: Female

DRUGS (4)
  1. DURAGESIC [Suspect]
     Route: 062
  2. DURAGESIC [Suspect]
     Dosage: TITRATED FROM 25 UG/HR TO 75 UG/HR
     Route: 062
  3. NEURONTIN [Concomitant]
     Route: 049
  4. NEURONTIN [Concomitant]
     Route: 049

REACTIONS (5)
  - ANOREXIA [None]
  - DRUG SCREEN POSITIVE [None]
  - HALLUCINATION, VISUAL [None]
  - HYPERSOMNIA [None]
  - INCOHERENT [None]
